FAERS Safety Report 10234762 (Version 1)
Quarter: 2014Q2

REPORT INFORMATION
  Report Type: Spontaneous
  Country: US (occurrence: US)
  Receive Date: 20140613
  Receipt Date: 20140613
  Transmission Date: 20141212
  Serious: No
  Sender: FDA-Public Use
  Company Number: US-DRREDDYS-USA/USA/13/0033945

PATIENT
  Age: 58 Year
  Sex: Female
  Weight: 78.47 kg

DRUGS (2)
  1. AMLODIPINE BESYLATE W/BENAZEPRIL HYDROCHLORIDE [Suspect]
     Indication: HYPERTENSION
     Route: 048
     Dates: start: 2013
  2. SYNTHROID [Concomitant]
     Indication: PRODUCT USED FOR UNKNOWN INDICATION
     Route: 065

REACTIONS (5)
  - Ear congestion [Unknown]
  - Nasal congestion [Unknown]
  - Sinus congestion [Unknown]
  - Ear discomfort [Unknown]
  - Muscle tightness [Unknown]
